FAERS Safety Report 26027636 (Version 1)
Quarter: 2025Q4

REPORT INFORMATION
  Report Type: Spontaneous
  Country: EU (occurrence: EU)
  Receive Date: 20251111
  Receipt Date: 20251111
  Transmission Date: 20260117
  Serious: Yes (Other)
  Sender: MYLAN
  Company Number: None

PATIENT
  Age: 79 Year
  Sex: Female
  Weight: 99 kg

DRUGS (1)
  1. TRIAMCINOLONE ACETONIDE [Suspect]
     Active Substance: TRIAMCINOLONE ACETONIDE
     Indication: Drug hypersensitivity
     Dosage: 1 DOSAGE FORM, QD (ONCE A DAY)
     Dates: start: 20250919

REACTIONS (1)
  - Postmenopausal haemorrhage [Not Recovered/Not Resolved]
